FAERS Safety Report 23192486 (Version 1)
Quarter: 2023Q4

REPORT INFORMATION
  Report Type: Spontaneous
  Country: US (occurrence: None)
  Receive Date: 20231116
  Receipt Date: 20231116
  Transmission Date: 20240110
  Serious: Yes (Hospitalization)
  Sender: FDA-Public Use
  Company Number: None

PATIENT
  Age: 60 Year
  Sex: Female

DRUGS (1)
  1. CAPECITABINE [Suspect]
     Active Substance: CAPECITABINE
     Indication: Breast cancer female
     Dosage: 1500MG ORAL??TAKE 3 TABLETS BY MOUTH 2 TIMES A DAY ON DAY 1 TO 14 OF A 21 DAY CYCLE
     Route: 048
     Dates: start: 202311

REACTIONS (1)
  - Lymphadenectomy [None]

NARRATIVE: CASE EVENT DATE: 20231113
